FAERS Safety Report 6625858-7 (Version None)
Quarter: 2010Q1

REPORT INFORMATION
  Report Type: 
  Country: None (occurrence: None)
  Receive Date: 20100305
  Receipt Date: 20100219
  Transmission Date: 20100710
  Serious: Yes (Other)
  Sender: FDA-Public Use
  Company Number: US-1180999

PATIENT
  Age: 54 Year
  Sex: Female

DRUGS (1)
  1. TRAVATAN [Suspect]
     Dosage: (OPHTHALMIC)
     Route: 047
     Dates: start: 20090501

REACTIONS (3)
  - BLOOD PRESSURE DIASTOLIC INCREASED [None]
  - DIZZINESS [None]
  - SINUSITIS [None]
